FAERS Safety Report 9342526 (Version 1)
Quarter: 2013Q2

REPORT INFORMATION
  Report Type: Spontaneous
  Country: AU (occurrence: GB)
  Receive Date: 20130611
  Receipt Date: 20130611
  Transmission Date: 20140414
  Serious: Yes (Death, Hospitalization)
  Sender: FDA-Public Use
  Company Number: AU-BAYER-2013-068527

PATIENT
  Age: 15 Year
  Sex: Female

DRUGS (12)
  1. CIPROFLOXACIN [Suspect]
     Indication: MYCOBACTERIUM ABSCESSUS INFECTION
     Route: 048
  2. CLARITHROMYCIN [Suspect]
     Indication: MYCOBACTERIUM ABSCESSUS INFECTION
     Route: 048
  3. AMIKACIN [Suspect]
     Indication: MYCOBACTERIUM ABSCESSUS INFECTION
     Route: 055
  4. SEPTRIN [Suspect]
     Indication: MYCOBACTERIUM ABSCESSUS INFECTION
     Route: 048
  5. BASILIXIMAB [Concomitant]
     Indication: LUNG TRANSPLANT
  6. PREDNISOLONE [Concomitant]
     Indication: IMMUNOSUPPRESSANT DRUG THERAPY
  7. TACROLIMUS [Concomitant]
     Indication: IMMUNOSUPPRESSANT DRUG THERAPY
  8. MYCOPHENOLATE MOFETIL [Concomitant]
     Indication: IMMUNOSUPPRESSANT DRUG THERAPY
  9. TIGECYCLINE [Concomitant]
     Indication: ANTIBIOTIC THERAPY
  10. IMIPENEM [Concomitant]
     Indication: ANTIBIOTIC THERAPY
  11. TEICOPLANIN [Concomitant]
     Indication: ANTIBIOTIC THERAPY
  12. CO-TRIMOXAZOLE [Concomitant]
     Indication: ANTIBIOTIC THERAPY

REACTIONS (5)
  - Sepsis [Fatal]
  - Acute respiratory distress syndrome [None]
  - Disseminated intravascular coagulation [None]
  - Pulmonary haemorrhage [None]
  - Drug ineffective [None]
